FAERS Safety Report 11968480 (Version 3)
Quarter: 2016Q1

REPORT INFORMATION
  Report Type: Spontaneous
  Country: US (occurrence: US)
  Receive Date: 20160128
  Receipt Date: 20160225
  Transmission Date: 20160526
  Serious: Yes (Hospitalization)
  Sender: FDA-Public Use
  Company Number: US-BEH-2016057946

PATIENT
  Age: 8 Year
  Sex: Male
  Weight: 24 kg

DRUGS (12)
  1. LIDOCAINE/PRILOCAINE [Concomitant]
  2. CITRIC ACID [Concomitant]
     Active Substance: CITRIC ACID MONOHYDRATE
  3. HIZENTRA [Suspect]
     Active Substance: HUMAN IMMUNOGLOBULIN G
     Indication: HYPOGAMMAGLOBULINAEMIA
     Route: 058
     Dates: start: 20110425
  4. METRONIDAZOLE. [Concomitant]
     Active Substance: METRONIDAZOLE
  5. DEXTROSE. [Concomitant]
     Active Substance: DEXTROSE
  6. DIPHENHYDRAMINE. [Concomitant]
     Active Substance: DIPHENHYDRAMINE
  7. VITAMIN D [Concomitant]
     Active Substance: CHOLECALCIFEROL
  8. VITAMIN D [Concomitant]
     Active Substance: CHOLECALCIFEROL
  9. EPIPEN [Concomitant]
     Active Substance: EPINEPHRINE
  10. ALBUMIN [Concomitant]
     Active Substance: ALBUMIN (HUMAN)
  11. ACETAMINOPHEN. [Concomitant]
     Active Substance: ACETAMINOPHEN
  12. CHOLESTYRAMINE. [Concomitant]
     Active Substance: CHOLESTYRAMINE

REACTIONS (3)
  - Pyrexia [Unknown]
  - Fungal infection [Unknown]
  - Device related infection [Unknown]

NARRATIVE: CASE EVENT DATE: 20150112
